FAERS Safety Report 15418723 (Version 2)
Quarter: 2018Q4

REPORT INFORMATION
  Report Type: Spontaneous
  Country: US (occurrence: US)
  Receive Date: 20180924
  Receipt Date: 20181009
  Transmission Date: 20190204
  Serious: No
  Sender: FDA-Public Use
  Company Number: US-SA-2018SA262440

PATIENT
  Age: 62 Year
  Sex: Female

DRUGS (1)
  1. LANTUS SOLOSTAR [Suspect]
     Active Substance: INSULIN GLARGINE
     Dosage: 70 U, QD
     Route: 065

REACTIONS (4)
  - Blood glucose increased [Unknown]
  - Needle issue [Unknown]
  - Product dose omission [Unknown]
  - Device operational issue [Unknown]
